FAERS Safety Report 23558197 (Version 1)
Quarter: 2024Q1

REPORT INFORMATION
  Report Type: Report from Study
  Country: CA (occurrence: None)
  Receive Date: 20240223
  Receipt Date: 20240223
  Transmission Date: 20240409
  Serious: Yes (Hospitalization)
  Sender: FDA-Public Use
  Company Number: 2024A043248

PATIENT
  Sex: Male

DRUGS (5)
  1. BREZTRI [Suspect]
     Active Substance: BUDESONIDE\FORMOTEROL\GLYCOPYRROLATE
     Indication: Asthma
     Dosage: 2 PUFFS TWICE DAILY
     Route: 055
     Dates: start: 202302, end: 202311
  2. PREDNISONE [Concomitant]
     Active Substance: PREDNISONE
     Dosage: 5.0MG UNKNOWN
     Dates: start: 202302
  3. ZENHALE [Concomitant]
     Active Substance: FORMOTEROL FUMARATE\MOMETASONE FUROATE
     Dosage: 200 MCG 2 PUFFS 2 TIMES DAILY
     Dates: start: 202311
  4. SPIRIVA [Concomitant]
     Active Substance: TIOTROPIUM BROMIDE MONOHYDRATE
     Dosage: 2 PUFFS ONCE DAILY
     Dates: start: 202311
  5. VENTOLIN [Concomitant]
     Active Substance: ALBUTEROL SULFATE
     Dosage: 100MCG PRN

REACTIONS (2)
  - Asthma [Unknown]
  - Drug ineffective [Unknown]
